FAERS Safety Report 6432432-4 (Version None)
Quarter: 2009Q4

REPORT INFORMATION
  Report Type: 
  Country: None (occurrence: None)
  Receive Date: 20091109
  Receipt Date: 20091008
  Transmission Date: 20100525
  Serious: No
  Sender: FDA-Public Use
  Company Number: US-BAYER-200936032NA

PATIENT
  Age: 32 Year
  Sex: Female

DRUGS (2)
  1. MIRENA [Suspect]
     Indication: CONTRACEPTION
     Dosage: CONTINUOUS
     Route: 015
     Dates: start: 20091005, end: 20091007
  2. UNKNOWN DRUG [Concomitant]
     Indication: CONTRACEPTION

REACTIONS (2)
  - DEVICE EXPULSION [None]
  - HEADACHE [None]
